FAERS Safety Report 18053261 (Version 1)
Quarter: 2020Q3

REPORT INFORMATION
  Report Type: Spontaneous
  Country: FR (occurrence: FR)
  Receive Date: 20200722
  Receipt Date: 20200722
  Transmission Date: 20201103
  Serious: Yes (Other)
  Sender: FDA-Public Use
  Company Number: FR-BAUSCH-BL-2020-020517

PATIENT
  Age: 66 Year
  Sex: Female
  Weight: 77 kg

DRUGS (3)
  1. THALIDOMIDE [Suspect]
     Active Substance: THALIDOMIDE
     Indication: PLASMA CELL MYELOMA
     Dosage: THALIDOMIDE USED IN THE INDUCTION (4 CYCLES D1?D28) AT 50 MG AND IN CONSOLIDATION (2 CYCLES D1?D)
     Route: 065
     Dates: start: 20160628, end: 20170326
  2. VELCADE [Suspect]
     Active Substance: BORTEZOMIB
     Indication: PLASMA CELL MYELOMA
     Dosage: (D1, 4, 8, 11)
     Route: 058
     Dates: start: 20160628, end: 20170309
  3. DEXAMETHASONE. [Suspect]
     Active Substance: DEXAMETHASONE
     Indication: PLASMA CELL MYELOMA
     Dosage: (D1, 2, 8, 9, 15, 16, 22, 23)
     Route: 065
     Dates: start: 20160628, end: 20170314

REACTIONS (1)
  - Basal cell carcinoma [Recovered/Resolved]

NARRATIVE: CASE EVENT DATE: 20191029
